FAERS Safety Report 9848685 (Version 1)
Quarter: 2014Q1

REPORT INFORMATION
  Report Type: Spontaneous
  Country: US (occurrence: US)
  Receive Date: 20140128
  Receipt Date: 20140128
  Transmission Date: 20141002
  Serious: No
  Sender: FDA-Public Use
  Company Number: US-009507513-1401USA004242

PATIENT
  Age: 2 Year
  Sex: Female
  Weight: 14.51 kg

DRUGS (2)
  1. CLARITIN ORAL SOLUTION [Suspect]
     Indication: HYPERSENSITIVITY
     Dosage: UNK, QD
     Route: 048
  2. CLARITIN ORAL SOLUTION [Suspect]
     Dosage: 5 MG, BID
     Route: 048

REACTIONS (1)
  - Overdose [Unknown]
